FAERS Safety Report 9695416 (Version 2)
Quarter: 2017Q3

REPORT INFORMATION
  Report Type: Report from Study
  Country: US (occurrence: US)
  Receive Date: 20131119
  Receipt Date: 20170725
  Transmission Date: 20171128
  Serious: Yes (Hospitalization, Other)
  Sender: FDA-Public Use
  Company Number: US-CELGENEUS-163-C4047-13112524

PATIENT

DRUGS (6)
  1. BORTEZOMIB [Suspect]
     Active Substance: BORTEZOMIB
     Dosage: 1.3 MICROGRAM/SQ. METER
     Route: 041
  2. CC-4047 [Suspect]
     Active Substance: POMALIDOMIDE
     Indication: PLASMA CELL MYELOMA
     Dosage: 4 MILLIGRAM
     Route: 048
  3. ACYCLOVIR. [Concomitant]
     Active Substance: ACYCLOVIR
     Indication: ANTIVIRAL PROPHYLAXIS
     Route: 065
  4. DEXAMETHASONE ORAL [Suspect]
     Active Substance: DEXAMETHASONE
     Indication: PLASMA CELL MYELOMA
     Dosage: 40 MILLIGRAM
     Route: 048
  5. ASPIRIN. [Concomitant]
     Active Substance: ASPIRIN
     Indication: THROMBOSIS PROPHYLAXIS
     Route: 065
  6. BORTEZOMIB [Suspect]
     Active Substance: BORTEZOMIB
     Indication: PLASMA CELL MYELOMA
     Dosage: 1 MILLIGRAM/SQ. METER
     Route: 041

REACTIONS (24)
  - Lymphopenia [Unknown]
  - Lung infection [Unknown]
  - Fatigue [Unknown]
  - Embolism [Unknown]
  - Constipation [Unknown]
  - Infection [Unknown]
  - Thrombocytopenia [Unknown]
  - Herpes zoster [Unknown]
  - Anaemia [Unknown]
  - Dyspnoea [Unknown]
  - Neutropenia [Unknown]
  - Nausea [Unknown]
  - Cytopenia [Unknown]
  - Diarrhoea [Unknown]
  - Anxiety [Unknown]
  - Vomiting [Unknown]
  - Muscular weakness [Unknown]
  - Atrial flutter [Unknown]
  - Pancytopenia [Unknown]
  - Deep vein thrombosis [Unknown]
  - Oedema [Unknown]
  - Dizziness [Unknown]
  - Leukopenia [Unknown]
  - Insomnia [Unknown]
